FAERS Safety Report 7639863-5 (Version None)
Quarter: 2011Q3

REPORT INFORMATION
  Report Type: 
  Country: None (occurrence: None)
  Receive Date: 20110727
  Receipt Date: 20110714
  Transmission Date: 20111222
  Serious: Yes (Other)
  Sender: FDA-Public Use
  Company Number: ES-MYLANLABS-2011S1014877

PATIENT
  Sex: Male

DRUGS (2)
  1. OMEPRAZOLE [Suspect]
     Dosage: BETWEEN 20 AND 40 MG/DAY, ON AN OCCASIONAL BASIS
     Route: 065
  2. OMEPRAZOLE [Suspect]
     Route: 065

REACTIONS (4)
  - HYPOMAGNESAEMIA [None]
  - TETANY [None]
  - SUPRAVENTRICULAR TACHYCARDIA [None]
  - HYPOCALCAEMIA [None]
